FAERS Safety Report 7351231-2 (Version None)
Quarter: 2011Q1

REPORT INFORMATION
  Report Type: 
  Country: None (occurrence: None)
  Receive Date: 20110314
  Receipt Date: 20110310
  Transmission Date: 20110831
  Serious: Yes (Hospitalization)
  Sender: FDA-Public Use
  Company Number: US-PERRIGO-11US001965

PATIENT
  Age: 14 Year
  Sex: Female
  Weight: 81.633 kg

DRUGS (1)
  1. IBUPROFEN [Suspect]
     Indication: INTENTIONAL OVERDOSE
     Dosage: UNK, ONCE
     Route: 048
     Dates: start: 20110308, end: 20110308

REACTIONS (4)
  - DISORIENTATION [None]
  - SOMNOLENCE [None]
  - INTENTIONAL OVERDOSE [None]
  - AGGRESSION [None]
